FAERS Safety Report 14581646 (Version 1)
Quarter: 2018Q1

REPORT INFORMATION
  Report Type: Spontaneous
  Country: GB (occurrence: GB)
  Receive Date: 20180228
  Receipt Date: 20180228
  Transmission Date: 20180509
  Serious: Yes (Other)
  Sender: FDA-Public Use
  Company Number: GB-GLAXOSMITHKLINE-GB2018028453

PATIENT
  Age: 34 Year
  Sex: Female
  Weight: 136 kg

DRUGS (3)
  1. NUCALA [Suspect]
     Active Substance: MEPOLIZUMAB
     Indication: INTERLEUKIN THERAPY
     Dosage: 100 MG, UNK
     Route: 058
     Dates: start: 20171019, end: 20171019
  2. NUCALA [Suspect]
     Active Substance: MEPOLIZUMAB
     Dosage: 100 MG, UNK
     Route: 058
     Dates: start: 20171123, end: 20171123
  3. NUCALA [Suspect]
     Active Substance: MEPOLIZUMAB
     Indication: INTERLEUKIN THERAPY
     Dosage: 100 MG, UNK
     Route: 058
     Dates: start: 20170921, end: 20170921

REACTIONS (8)
  - Throat irritation [Recovered/Resolved]
  - Eye pruritus [Recovered/Resolved]
  - Wheezing [Recovered/Resolved]
  - Rash erythematous [Recovered/Resolved]
  - Nasal pruritus [Recovered/Resolved]
  - Paraesthesia oral [Recovered/Resolved]
  - Nausea [Recovered/Resolved]
  - Pruritus [Recovered/Resolved]

NARRATIVE: CASE EVENT DATE: 20170921
